FAERS Safety Report 5281281-1 (Version None)
Quarter: 2007Q1

REPORT INFORMATION
  Report Type: 
  Country: None (occurrence: None)
  Receive Date: 20061221
  Receipt Date: 20060904
  Transmission Date: 20070707
  Serious: No
  Sender: FDA-Public Use
  Company Number: SP00970

PATIENT
  Age: 34 Year
  Sex: Female
  Weight: 53.5244 kg

DRUGS (4)
  1. XIFAXAN [Suspect]
     Indication: ENTERITIS INFECTIOUS
     Dosage: 400MG/ONCE, ORAL
     Route: 048
     Dates: start: 20060831, end: 20060831
  2. SYNTHROID [Concomitant]
  3. OVCON-35 [Concomitant]
  4. DYAZIDE [Concomitant]

REACTIONS (8)
  - CHILLS [None]
  - DYSPHAGIA [None]
  - MIGRAINE [None]
  - NECK INJURY [None]
  - ODYNOPHAGIA [None]
  - OEDEMA PERIPHERAL [None]
  - PAIN [None]
  - PYREXIA [None]
